FAERS Safety Report 9271605 (Version 2)
Quarter: 2013Q4

REPORT INFORMATION
  Report Type: Spontaneous
  Country: GB (occurrence: GB)
  Receive Date: 20130506
  Receipt Date: 20131018
  Transmission Date: 20140711
  Serious: Yes (Other)
  Sender: FDA-Public Use
  Company Number: GB-PFIZER INC-2013138245

PATIENT
  Sex: Male

DRUGS (1)
  1. TAZOCIN [Suspect]
     Dosage: 4.5 G, DAILY
     Route: 042
     Dates: end: 20130408

REACTIONS (3)
  - Pruritus [Recovered/Resolved]
  - Skin burning sensation [Recovered/Resolved]
  - Rash [Recovered/Resolved]
